FAERS Safety Report 4941544-3 (Version None)
Quarter: 2006Q1

REPORT INFORMATION
  Report Type: 
  Country: None (occurrence: None)
  Receive Date: 20060310
  Receipt Date: 20060310
  Transmission Date: 20060701
  Serious: Yes (Life-Threatening, Hospitalization, Disabling, Other)
  Sender: FDA-Public Use
  Company Number: None

PATIENT
  Sex: Female
  Weight: 72.5755 kg

DRUGS (1)
  1. ORTHO EVRA [Suspect]
     Indication: MENOPAUSE
     Dosage: 1 PATCH   1 PATCH/WEEK  TRANSDERMAL
     Route: 062
     Dates: start: 20040804, end: 20040827

REACTIONS (5)
  - INFERIOR VENA CAVAL OCCLUSION [None]
  - PAIN [None]
  - POOR PERIPHERAL CIRCULATION [None]
  - THROMBOSIS [None]
  - VASCULAR OPERATION [None]
